FAERS Safety Report 13847853 (Version 1)
Quarter: 2017Q3

REPORT INFORMATION
  Report Type: Spontaneous
  Country: US (occurrence: US)
  Receive Date: 20170809
  Receipt Date: 20170809
  Transmission Date: 20171127
  Serious: No
  Sender: FDA-Public Use
  Company Number: US-PURDUE-USA-2017-0136980

PATIENT
  Age: 58 Year
  Sex: Female

DRUGS (2)
  1. BUTRANS [Suspect]
     Active Substance: BUPRENORPHINE
     Indication: BACK PAIN
     Dosage: 15 MCG/HR, WEEKLY
     Route: 062
     Dates: start: 201702, end: 201703
  2. BUTRANS [Suspect]
     Active Substance: BUPRENORPHINE
     Indication: NECK PAIN
     Dosage: 15 MCG/HR, UNK
     Route: 062
     Dates: start: 201611

REACTIONS (12)
  - Application site swelling [Recovered/Resolved]
  - Scar [Recovering/Resolving]
  - Hypersensitivity [Not Recovered/Not Resolved]
  - Application site scar [Recovering/Resolving]
  - Scratch [Not Recovered/Not Resolved]
  - Application site odour [Recovered/Resolved]
  - Urticaria [Not Recovered/Not Resolved]
  - Inappropriate schedule of drug administration [Recovered/Resolved]
  - Application site erythema [Recovered/Resolved]
  - Application site pruritus [Recovered/Resolved]
  - Staphylococcal infection [Not Recovered/Not Resolved]
  - Application site pain [Recovered/Resolved]

NARRATIVE: CASE EVENT DATE: 201611
